FAERS Safety Report 10060856 (Version 2)
Quarter: 2014Q2

REPORT INFORMATION
  Report Type: Report from Study
  Country: US (occurrence: US)
  Receive Date: 20140404
  Receipt Date: 20140417
  Transmission Date: 20141212
  Serious: Yes (Death, Other)
  Sender: FDA-Public Use
  Company Number: US-ACTELION-A-NJ2014-96978

PATIENT
  Age: 57 Year
  Sex: Male

DRUGS (1)
  1. MACITENTAN [Suspect]
     Indication: PULMONARY ARTERIAL HYPERTENSION
     Dosage: 1 UNK, QD
     Route: 048
     Dates: end: 201403

REACTIONS (8)
  - Pneumonia aspiration [Fatal]
  - Pneumonia [Fatal]
  - Pulmonary arterial hypertension [Fatal]
  - Right ventricular failure [Fatal]
  - Disease progression [Fatal]
  - Interstitial lung disease [Fatal]
  - Respiratory failure [Fatal]
  - Cardiac failure congestive [Unknown]
